FAERS Safety Report 6181822-6 (Version None)
Quarter: 2009Q2

REPORT INFORMATION
  Report Type: 
  Country: None (occurrence: None)
  Receive Date: 20090506
  Receipt Date: 20090427
  Transmission Date: 20091009
  Serious: Yes (Hospitalization, Other)
  Sender: FDA-Public Use
  Company Number: PHHY2009BR16457

PATIENT
  Sex: Female
  Weight: 65 kg

DRUGS (11)
  1. EXELON [Suspect]
     Indication: DEMENTIA ALZHEIMER'S TYPE
     Dosage: UNK
     Route: 048
  2. EXELON [Suspect]
     Dosage: 4.5ML IN THE MORNING AND 4.5MG AT NIGHT
     Route: 048
     Dates: start: 20081101, end: 20090101
  3. GINKGO BILOBA [Concomitant]
     Dosage: 80 MG, TID
  4. CAPTOPRIL [Concomitant]
     Dosage: UNK
     Route: 048
  5. ANCORON [Concomitant]
     Indication: ARRHYTHMIA
     Dosage: 1 DF, UNK
     Route: 048
     Dates: start: 20090413
  6. MAREVAN [Concomitant]
     Dosage: 1/4 TABLET OF MONDAY TO FRIDAY
     Route: 048
     Dates: start: 20090301
  7. MIRTAZAPINE [Concomitant]
     Dosage: 1 DF, AT NIGHT
     Route: 048
     Dates: start: 20070901
  8. METFORMIN HCL [Concomitant]
     Indication: BLOOD GLUCOSE FLUCTUATION
     Dosage: 1 TABLET AT LUNCH AND ONE TABLET AT DINNER
     Route: 048
     Dates: start: 20070901
  9. CALCIUM CITRATE [Concomitant]
     Dosage: UNK
     Dates: start: 20070901
  10. AAS [Concomitant]
     Dosage: 1 TABLET AT LUNCH AND 1 TABLET AT DINNER
     Route: 048
     Dates: start: 20090201, end: 20090301
  11. ALENDRONATE SODIUM [Concomitant]
     Dosage: 1 TABLET PER WEEK
     Route: 048
     Dates: start: 20070901

REACTIONS (17)
  - AGITATION [None]
  - ARRHYTHMIA [None]
  - BLOOD GLUCOSE INCREASED [None]
  - CEREBROVASCULAR ACCIDENT [None]
  - COLD SWEAT [None]
  - CONFUSIONAL STATE [None]
  - CONSTIPATION [None]
  - DIARRHOEA [None]
  - DIZZINESS [None]
  - MALAISE [None]
  - NAUSEA [None]
  - OCULAR HYPERAEMIA [None]
  - PARALYSIS [None]
  - SPEECH DISORDER [None]
  - THROMBOSIS [None]
  - TONGUE DISORDER [None]
  - VOMITING [None]
